FAERS Safety Report 6271885-1 (Version None)
Quarter: 2009Q3

REPORT INFORMATION
  Report Type: 
  Country: None (occurrence: None)
  Receive Date: 20090715
  Receipt Date: 20090625
  Transmission Date: 20100115
  Serious: Yes (Hospitalization)
  Sender: FDA-Public Use
  Company Number: M-09-0580

PATIENT
  Age: 90 Year
  Sex: Female

DRUGS (1)
  1. KLOR-CON [Suspect]
     Indication: MINERAL SUPPLEMENTATION
     Dosage: 8 MEQ WITH LUNCH, 16 MEQ WITH DINNER, PO
     Route: 048
     Dates: start: 19920101, end: 20070101

REACTIONS (13)
  - APPENDICITIS PERFORATED [None]
  - BLOOD POTASSIUM DECREASED [None]
  - CARBON DIOXIDE INCREASED [None]
  - COMA [None]
  - DIZZINESS [None]
  - GASTROENTERITIS VIRAL [None]
  - MEDICATION RESIDUE [None]
  - MULTI-ORGAN FAILURE [None]
  - PAIN [None]
  - PYREXIA [None]
  - RENAL FAILURE [None]
  - RESPIRATORY FAILURE [None]
  - SEPSIS [None]
